FAERS Safety Report 6384929-3 (Version None)
Quarter: 2009Q4

REPORT INFORMATION
  Report Type: 
  Country: None (occurrence: None)
  Receive Date: 20091002
  Receipt Date: 20090804
  Transmission Date: 20100525
  Serious: No
  Sender: FDA-Public Use
  Company Number: A0795764A

PATIENT
  Age: 81 Year
  Sex: Male

DRUGS (6)
  1. REQUIP XL [Suspect]
     Indication: PARKINSON'S DISEASE
     Dosage: 12MG PER DAY
     Route: 048
     Dates: start: 20090501
  2. FLOMAX [Concomitant]
  3. TIMOLOL EYE DROPS [Concomitant]
  4. ASPIRIN [Concomitant]
  5. MULTI-VITAMIN [Concomitant]
  6. VITAMIN D [Concomitant]

REACTIONS (1)
  - OEDEMA PERIPHERAL [None]
